FAERS Safety Report 5435362-X (Version None)
Quarter: 2007Q3

REPORT INFORMATION
  Report Type: 
  Country: None (occurrence: None)
  Receive Date: 20070831
  Receipt Date: 20070828
  Transmission Date: 20080115
  Serious: Yes (Life-Threatening, Other)
  Sender: FDA-Public Use
  Company Number: DE-ABBOTT-07P-062-0371893-00

PATIENT
  Sex: Male
  Weight: 57 kg

DRUGS (8)
  1. HUMIRA [Suspect]
     Indication: RHEUMATOID ARTHRITIS
     Route: 058
     Dates: start: 20070308, end: 20070628
  2. METHOTREXATE [Concomitant]
     Indication: RHEUMATOID ARTHRITIS
     Route: 058
     Dates: start: 20001201
  3. CORTISONE ACETATE TAB [Concomitant]
     Indication: RHEUMATOID ARTHRITIS
  4. ANALGESICS [Concomitant]
     Indication: HEADACHE
  5. PREDNISOLONE [Concomitant]
     Indication: DRUG USE FOR UNKNOWN INDICATION
  6. LACTULOSE [Concomitant]
     Indication: CONSTIPATION
  7. MUCAINE [Concomitant]
     Indication: DRUG USE FOR UNKNOWN INDICATION
     Route: 048
  8. METAMIZOLE SODIUM MONOHYDRATE [Concomitant]
     Indication: PAIN

REACTIONS (2)
  - HYPOPHARYNGEAL CANCER [None]
  - RADIATION MUCOSITIS [None]
